FAERS Safety Report 12196705 (Version 2)
Quarter: 2016Q2

REPORT INFORMATION
  Report Type: Spontaneous
  Country: DE (occurrence: DE)
  Receive Date: 20160321
  Receipt Date: 20160517
  Transmission Date: 20160815
  Serious: Yes (Other)
  Sender: FDA-Public Use
  Company Number: DE-ELI_LILLY_AND_COMPANY-DE201603003468

PATIENT
  Age: 62 Year
  Sex: Female

DRUGS (1)
  1. ARICLAIM [Suspect]
     Active Substance: DULOXETINE HYDROCHLORIDE
     Indication: SACROILIITIS
     Dosage: 60 MG, QD
     Route: 065

REACTIONS (2)
  - Ventricular extrasystoles [Recovered/Resolved]
  - Off label use [Unknown]
